FAERS Safety Report 21124752 (Version 1)
Quarter: 2022Q3

REPORT INFORMATION
  Report Type: Spontaneous
  Country: RU (occurrence: RU)
  Receive Date: 20220725
  Receipt Date: 20220725
  Transmission Date: 20221027
  Serious: Yes (Other)
  Sender: FDA-Public Use
  Company Number: RU-BRISTOL-MYERS SQUIBB COMPANY-2022-076948

PATIENT
  Age: 84 Year
  Sex: Female

DRUGS (1)
  1. ELIQUIS [Suspect]
     Active Substance: APIXABAN
     Indication: Deep vein thrombosis
     Route: 065
     Dates: start: 202207, end: 20220718

REACTIONS (2)
  - Hepatic pain [Unknown]
  - Hepatic enzyme abnormal [Unknown]

NARRATIVE: CASE EVENT DATE: 20220701
